FAERS Safety Report 5914140-9 (Version None)
Quarter: 2008Q3

REPORT INFORMATION
  Report Type: 
  Country: None (occurrence: None)
  Receive Date: 20080909
  Receipt Date: 20080112
  Transmission Date: 20090109
  Serious: Yes (Death, Hospitalization, Other)
  Sender: FDA-Public Use
  Company Number: 163-20785-08010716

PATIENT
  Age: 62 Year
  Sex: Female
  Weight: 55.16 kg

DRUGS (1)
  1. THALOMID [Suspect]
     Indication: UTERINE CANCER
     Dosage: 200 MG, DOSE ESCALATED BY 200MG QW QD, ORAL
     Route: 048
     Dates: start: 20071214, end: 20071229

REACTIONS (3)
  - DISEASE PROGRESSION [None]
  - DYSPNOEA [None]
  - PLEURAL EFFUSION [None]
